FAERS Safety Report 17490301 (Version 1)
Quarter: 2020Q1

REPORT INFORMATION
  Report Type: Spontaneous
  Country: US (occurrence: US)
  Receive Date: 20200303
  Receipt Date: 20200303
  Transmission Date: 20200409
  Serious: Yes (Other)
  Sender: FDA-Public Use
  Company Number: US-AKORN PHARMACEUTICALS-2019AKN01335

PATIENT
  Age: 17 Year
  Sex: Male
  Weight: 69.84 kg

DRUGS (5)
  1. CLINDAMYCIN FOAM [Concomitant]
  2. CLOBETASOL SHAMPOO [Concomitant]
  3. CLOBETASOL SOLUTION [Concomitant]
  4. MYORISAN [Suspect]
     Active Substance: ISOTRETINOIN
     Indication: DERMATITIS PAPILLARIS CAPILLITII
     Dosage: 40 MG, 1X/DAY
     Route: 048
     Dates: start: 20190225, end: 2019
  5. CLARAVIS [Suspect]
     Active Substance: ISOTRETINOIN
     Indication: DERMATITIS PAPILLARIS CAPILLITII
     Dosage: 40 MG, 1X/DAY
     Route: 048
     Dates: start: 20190222, end: 20190521

REACTIONS (3)
  - Off label use [Recovered/Resolved]
  - Thrombocytopenia [Unknown]
  - Abdominal pain [Unknown]

NARRATIVE: CASE EVENT DATE: 2019
